FAERS Safety Report 22365344 (Version 1)
Quarter: 2023Q2

REPORT INFORMATION
  Report Type: Spontaneous
  Country: US (occurrence: US)
  Receive Date: 20230525
  Receipt Date: 20230525
  Transmission Date: 20230722
  Serious: No
  Sender: FDA-Public Use
  Company Number: US-ABBVIE-4767007

PATIENT

DRUGS (1)
  1. HUMIRA [Suspect]
     Active Substance: ADALIMUMAB
     Indication: Product used for unknown indication
     Route: 058

REACTIONS (6)
  - Arthralgia [Unknown]
  - Incontinence [Unknown]
  - Pain [Unknown]
  - Loss of personal independence in daily activities [Unknown]
  - Tendonitis [Unknown]
  - Tendon pain [Unknown]
